FAERS Safety Report 8928012 (Version 1)
Quarter: 2012Q4

REPORT INFORMATION
  Report Type: Spontaneous
  Country: US (occurrence: None)
  Receive Date: 20121121
  Receipt Date: 20121121
  Transmission Date: 20130627
  Serious: Yes (Hospitalization)
  Sender: FDA-Public Use
  Company Number: None

PATIENT
  Age: 63 Year
  Sex: Female

DRUGS (1)
  1. ROBAFEN AC [Suspect]
     Indication: COUGH
     Dosage: 2 mL as needed, Oral
     Route: 048
     Dates: start: 20120816

REACTIONS (2)
  - Nausea [None]
  - Vomiting [None]
